FAERS Safety Report 17443593 (Version 1)
Quarter: 2020Q1

REPORT INFORMATION
  Report Type: Spontaneous
  Country: US (occurrence: US)
  Receive Date: 20200220
  Receipt Date: 20200220
  Transmission Date: 20200409
  Serious: No
  Sender: FDA-Public Use
  Company Number: None

PATIENT
  Age: 43 Year
  Sex: Female
  Weight: 61.65 kg

DRUGS (2)
  1. SOLOSEC [Suspect]
     Active Substance: SECNIDAZOLE
     Indication: BACTERIAL VAGINOSIS
     Dosage: ?          QUANTITY:1 GRANULES;?
     Route: 048
     Dates: start: 20200215, end: 20200215
  2. KYLENA IUD [Concomitant]

REACTIONS (8)
  - Abdominal discomfort [None]
  - Abdominal pain upper [None]
  - Muscle spasms [None]
  - Fatigue [None]
  - Food intolerance [None]
  - Nausea [None]
  - Headache [None]
  - Bowel movement irregularity [None]

NARRATIVE: CASE EVENT DATE: 20200216
